FAERS Safety Report 9350842 (Version 2)
Quarter: 2013Q2

REPORT INFORMATION
  Report Type: Spontaneous
  Country: NL (occurrence: NL)
  Receive Date: 20130617
  Receipt Date: 20130624
  Transmission Date: 20140414
  Serious: Yes (Disabling)
  Sender: FDA-Public Use
  Company Number: NL-MERCK-1306NLD004531

PATIENT
  Sex: Female

DRUGS (3)
  1. SINEMET [Suspect]
     Indication: PARKINSON^S DISEASE
     Dosage: 7 X 1 TAB
     Route: 048
     Dates: end: 2013
  2. SINEMET 62,5 [Suspect]
     Indication: PARKINSON^S DISEASE
     Dosage: 7 X 2 TAB
     Route: 048
     Dates: start: 2013
  3. SINEMET 62,5 [Suspect]
     Dosage: 4 X 2
     Route: 048

REACTIONS (1)
  - Activities of daily living impaired [Recovered/Resolved]
